FAERS Safety Report 10582076 (Version 1)
Quarter: 2014Q4

REPORT INFORMATION
  Report Type: Spontaneous
  Country: US (occurrence: US)
  Receive Date: 20141113
  Receipt Date: 20141113
  Transmission Date: 20150529
  Serious: No
  Sender: FDA-Public Use
  Company Number: US-BAYER-2014-167985

PATIENT
  Age: 81 Year
  Sex: Female
  Weight: 53.52 kg

DRUGS (1)
  1. ALEVE PM [Suspect]
     Active Substance: DIPHENHYDRAMINE HYDROCHLORIDE\NAPROXEN SODIUM
     Indication: BACK PAIN
     Dosage: 2 DF, ONCE
     Route: 048
     Dates: start: 201411, end: 2014

REACTIONS (2)
  - Dry mouth [Recovered/Resolved]
  - Drug ineffective [Unknown]

NARRATIVE: CASE EVENT DATE: 201411
